FAERS Safety Report 13130231 (Version 1)
Quarter: 2017Q1

REPORT INFORMATION
  Report Type: Spontaneous
  Country: FR (occurrence: FR)
  Receive Date: 20170119
  Receipt Date: 20170119
  Transmission Date: 20170428
  Serious: Yes (Hospitalization)
  Sender: FDA-Public Use
  Company Number: FR-GLAXOSMITHKLINE-FR2017GSK005187

PATIENT
  Sex: Female

DRUGS (3)
  1. DEBRIDAT [Concomitant]
     Active Substance: TRIMEBUTINE MALEATE
  2. LEXOMIL [Concomitant]
     Active Substance: BROMAZEPAM
  3. ZELITREX [Suspect]
     Active Substance: VALACYCLOVIR HYDROCHLORIDE
     Indication: HERPES SIMPLEX
     Dosage: 500 MG, QD

REACTIONS (1)
  - White blood cell count decreased [Unknown]
